FAERS Safety Report 25945341 (Version 1)
Quarter: 2025Q4

REPORT INFORMATION
  Report Type: Spontaneous
  Country: US (occurrence: US)
  Receive Date: 20251021
  Receipt Date: 20251021
  Transmission Date: 20260117
  Serious: Yes (Other)
  Sender: COOPERSURGICAL
  Company Number: US-COOPERSURGICAL, INC.-2025CPS007325

PATIENT
  Age: 35 Year
  Sex: Female
  Weight: 68.934 kg

DRUGS (1)
  1. PARAGARD T 380A [Suspect]
     Active Substance: COPPER
     Indication: Contraception
     Dosage: UNK
     Route: 015
     Dates: start: 20130301, end: 20200207

REACTIONS (16)
  - Surgery [Recovered/Resolved]
  - Cervical dysplasia [Unknown]
  - Device breakage [Recovered/Resolved]
  - Foreign body in reproductive tract [Recovered/Resolved]
  - Complication of device removal [Recovered/Resolved]
  - Embedded device [Recovered/Resolved]
  - Emotional distress [Not Recovered/Not Resolved]
  - Hormone level abnormal [Not Recovered/Not Resolved]
  - Muscle spasms [Unknown]
  - Pelvic pain [Recovered/Resolved]
  - Back pain [Unknown]
  - Heavy menstrual bleeding [Recovered/Resolved]
  - Vaginal discharge [Unknown]
  - Vaginal infection [Unknown]
  - Bacterial vaginosis [Unknown]
  - Abdominal pain [Recovering/Resolving]

NARRATIVE: CASE EVENT DATE: 20180101
